FAERS Safety Report 4808826-7 (Version None)
Quarter: 2005Q4

REPORT INFORMATION
  Report Type: 
  Country: None (occurrence: None)
  Receive Date: 20051025
  Receipt Date: 20051016
  Transmission Date: 20060501
  Serious: Yes (Other)
  Sender: FDA-Public Use
  Company Number: PHBS2005IL15177

PATIENT
  Age: 59 Year
  Sex: Female

DRUGS (2)
  1. ZOMETA [Suspect]
     Indication: BREAST CANCER METASTATIC
     Dosage: 4 MG
     Route: 042
     Dates: start: 20030201
  2. XELODA [Concomitant]
     Route: 065

REACTIONS (4)
  - DENTAL TREATMENT [None]
  - JAW DISORDER [None]
  - OSTEONECROSIS [None]
  - SURGERY [None]
